FAERS Safety Report 7245013-X (Version None)
Quarter: 2011Q1

REPORT INFORMATION
  Report Type: 
  Country: None (occurrence: None)
  Receive Date: 20110126
  Receipt Date: 20110121
  Transmission Date: 20110831
  Serious: Yes (Other)
  Sender: FDA-Public Use
  Company Number: US-PFIZER INC-2010116681

PATIENT
  Sex: Female
  Weight: 56.236 kg

DRUGS (6)
  1. NEURONTIN [Suspect]
     Dosage: UNK
     Dates: start: 20100901
  2. CLARITIN [Concomitant]
     Dosage: UNK
  3. PERCOCET [Concomitant]
     Dosage: UNK
  4. NEXIUM [Concomitant]
     Dosage: UNK
  5. RELISTOR [Suspect]
     Indication: CONSTIPATION
     Dosage: UNK DOSE INTERMITTENTLY
     Route: 058
     Dates: start: 20100501
  6. LISINOPRIL [Concomitant]
     Dosage: 20 MG, UNK

REACTIONS (5)
  - ABDOMINAL PAIN UPPER [None]
  - DYSKINESIA [None]
  - OEDEMA PERIPHERAL [None]
  - APHAGIA [None]
  - NAUSEA [None]
